FAERS Safety Report 7565304-2 (Version None)
Quarter: 2011Q2

REPORT INFORMATION
  Report Type: 
  Country: None (occurrence: None)
  Receive Date: 20110623
  Receipt Date: 20110615
  Transmission Date: 20111010
  Serious: Yes (Hospitalization)
  Sender: FDA-Public Use
  Company Number: US-BIOGENIDEC-2011BI005174

PATIENT
  Age: 64 Year
  Sex: Female

DRUGS (2)
  1. AVONEX [Concomitant]
     Indication: MULTIPLE SCLEROSIS
     Route: 030
  2. TYSABRI [Suspect]
     Indication: MULTIPLE SCLEROSIS
     Route: 042
     Dates: start: 20070814

REACTIONS (5)
  - CYSTITIS [None]
  - CHOLELITHIASIS [None]
  - MOBILITY DECREASED [None]
  - ABDOMINAL PAIN [None]
  - NAUSEA [None]
